FAERS Safety Report 10382839 (Version 2)
Quarter: 2019Q1

REPORT INFORMATION
  Report Type: Report from Study
  Country: US (occurrence: US)
  Receive Date: 20140813
  Receipt Date: 20190319
  Transmission Date: 20190417
  Serious: Yes (Hospitalization)
  Sender: FDA-Public Use
  Company Number: US-SA-2013SA125654

PATIENT
  Age: 20 Year
  Sex: Male

DRUGS (4)
  1. AGALSIDASE BETA [Suspect]
     Active Substance: AGALSIDASE BETA
     Indication: FABRY^S DISEASE
     Dosage: 1 MG/KG,QOW
     Route: 041
     Dates: start: 20120430
  2. AGALSIDASE BETA [Suspect]
     Active Substance: AGALSIDASE BETA
     Dosage: DOSE: 65 (UNITS NOT PROVIDED) FREQUENCY: Q2
     Route: 041
     Dates: start: 20120503
  3. AGALSIDASE BETA [Suspect]
     Active Substance: AGALSIDASE BETA
     Dosage: 1 MG/KG,QOW
     Route: 041
     Dates: end: 20140102
  4. AGALSIDASE BETA [Suspect]
     Active Substance: AGALSIDASE BETA
     Dosage: 65,Q2
     Route: 041
     Dates: start: 20190208

REACTIONS (13)
  - Dizziness [Unknown]
  - Abdominal discomfort [Recovered/Resolved]
  - Pain [Not Recovered/Not Resolved]
  - Burning sensation [Not Recovered/Not Resolved]
  - Gastroenteritis viral [Recovered/Resolved]
  - Nausea [Recovered/Resolved]
  - Pain [Not Recovered/Not Resolved]
  - Blood glucose decreased [Unknown]
  - Malaise [Unknown]
  - Skin discolouration [Recovering/Resolving]
  - Fatigue [Unknown]
  - Pain in extremity [Recovering/Resolving]
  - Pain [Recovered/Resolved]

NARRATIVE: CASE EVENT DATE: 20140201
